FAERS Safety Report 23426491 (Version 2)
Quarter: 2024Q2

REPORT INFORMATION
  Report Type: Spontaneous
  Country: US (occurrence: US)
  Receive Date: 20240122
  Receipt Date: 20240409
  Transmission Date: 20240716
  Serious: No
  Sender: FDA-Public Use
  Company Number: US-BRISTOL-MYERS SQUIBB COMPANY-2024-009883

PATIENT
  Age: 75 Year
  Sex: Male

DRUGS (11)
  1. POMALYST [Suspect]
     Active Substance: POMALIDOMIDE
     Indication: Plasma cell myeloma
     Route: 048
     Dates: start: 20231227
  2. ASPIRIN [Concomitant]
     Active Substance: ASPIRIN
     Indication: Product used for unknown indication
  3. AMOX+AC CLAV ACV [Concomitant]
     Indication: Product used for unknown indication
     Dosage: 875-125MG
     Route: 048
  4. ATORVASTATIN [Concomitant]
     Active Substance: ATORVASTATIN
     Indication: Product used for unknown indication
     Route: 048
  5. BROMFENAC [Concomitant]
     Active Substance: BROMFENAC SODIUM
     Indication: Product used for unknown indication
     Dosage: OPTH, 1.7 ML
  6. DEXAMETHASONE [Concomitant]
     Active Substance: DEXAMETHASONE
     Indication: Product used for unknown indication
     Route: 048
  7. DIAZEPAM [Concomitant]
     Active Substance: DIAZEPAM
     Indication: Product used for unknown indication
     Dosage: TAKE 1 TABLET BY MOUTH 90 MINUTES PRIOR TO BONE MARROW BIOPSY
  8. KETOROLAC [Concomitant]
     Active Substance: KETOROLAC TROMETHAMINE
     Indication: Product used for unknown indication
     Dosage: SOL 5 ML?INSTILL 1 DROP IN AFFECTED EYE MICE DAILY AS DIRECTED. START 2 DAYS BEFORE SURGERY
  9. OFLOXACIN [Concomitant]
     Active Substance: OFLOXACIN
     Indication: Product used for unknown indication
     Dosage: SOL 5 ML?INSTILLI DROP IN AFFECTED EYE MICE DAILY AS?DIRECTED. START 2 DAYS BEFORE SURGERY
  10. PREDNISOLONE [Concomitant]
     Active Substance: PREDNISOLONE
     Indication: Product used for unknown indication
     Dosage: 1% OPHTH SUSP 5ML ?SHAKE LIQUID AND INSTILL 1 DROP IN AFFECTED EYE TWICE DAILY AS DIRECTED. START 2
  11. VALACYCLOVIR [Concomitant]
     Active Substance: VALACYCLOVIR HYDROCHLORIDE
     Indication: Product used for unknown indication
     Dosage: 1% OPHTH SUSP 5ML ?SHAKE LIQUID AND INSTILL 1 DROP IN AFFECTED EYE TWICE DAILY AS DIRECTED. START 2
     Route: 048

REACTIONS (1)
  - Rash [Unknown]

NARRATIVE: CASE EVENT DATE: 20240101
